FAERS Safety Report 5353431-X (Version None)
Quarter: 2007Q2

REPORT INFORMATION
  Report Type: 
  Country: None (occurrence: None)
  Receive Date: 20070612
  Receipt Date: 20070601
  Transmission Date: 20071010
  Serious: Yes (Hospitalization)
  Sender: FDA-Public Use
  Company Number: PHBS2007TW02054

PATIENT
  Age: 75 Year
  Sex: Male
  Weight: 65 kg

DRUGS (1)
  1. CO-DIOVAN [Suspect]
     Indication: HYPERTENSION
     Route: 048
     Dates: start: 20060803

REACTIONS (5)
  - BLISTER [None]
  - CEREBRAL HAEMORRHAGE [None]
  - GLASGOW COMA SCALE ABNORMAL [None]
  - LOSS OF CONSCIOUSNESS [None]
  - TRACHEOSTOMY [None]
